FAERS Safety Report 18711810 (Version 1)
Quarter: 2021Q1

REPORT INFORMATION
  Report Type: Spontaneous
  Country: US (occurrence: US)
  Receive Date: 20210106
  Receipt Date: 20210106
  Transmission Date: 20210419
  Serious: Yes (Hospitalization)
  Sender: FDA-Public Use
  Company Number: None

PATIENT
  Age: 62 Year
  Sex: Female

DRUGS (14)
  1. DEXTROAMPHET SACCHARAT, AMPHET ASPARTATE, DEXTROAMPHET SULFATE AND AMPHET SULFAT [Concomitant]
     Active Substance: AMPHETAMINE ASPARTATE\AMPHETAMINE SULFATE\DEXTROAMPHETAMINE SACCHARATE\DEXTROAMPHETAMINE SULFATE
  2. FOLIC ACID. [Concomitant]
     Active Substance: FOLIC ACID
  3. BUPRENORPHIN SUB [Concomitant]
     Active Substance: BUPRENORPHINE
  4. ONDANSETRON [Concomitant]
     Active Substance: ONDANSETRON
  5. VENLAFAXINE [Concomitant]
     Active Substance: VENLAFAXINE HYDROCHLORIDE
  6. CIMZIA [Suspect]
     Active Substance: CERTOLIZUMAB PEGOL
     Indication: RHEUMATOID ARTHRITIS
     Route: 058
     Dates: start: 20191207
  7. LOSARTAN POT [Concomitant]
     Active Substance: LOSARTAN POTASSIUM
  8. CELECOXIB. [Concomitant]
     Active Substance: CELECOXIB
  9. FLUOXETINE [Concomitant]
     Active Substance: FLUOXETINE HYDROCHLORIDE
  10. HYDROCO/APAP [Concomitant]
     Active Substance: ACETAMINOPHEN\HYDROCODONE
  11. CEPHALEXIN. [Concomitant]
     Active Substance: CEPHALEXIN
  12. METOPROL SUC ER [Concomitant]
     Active Substance: METOPROLOL SUCCINATE
  13. RABEPRAZOLE [Concomitant]
     Active Substance: RABEPRAZOLE
  14. ZOLPIDEM [Concomitant]
     Active Substance: ZOLPIDEM TARTRATE

REACTIONS (1)
  - Condition aggravated [None]

NARRATIVE: CASE EVENT DATE: 20210102
